FAERS Safety Report 16043271 (Version 6)
Quarter: 2020Q4

REPORT INFORMATION
  Report Type: Report from Study
  Country: CO (occurrence: CO)
  Receive Date: 20190306
  Receipt Date: 20201010
  Transmission Date: 20210113
  Serious: Yes (Other)
  Sender: FDA-Public Use
  Company Number: PHHY2018CO106563

PATIENT
  Age: 50 Year
  Sex: Female
  Weight: 88 kg

DRUGS (9)
  1. LOSARTAN. [Suspect]
     Active Substance: LOSARTAN
     Indication: PRODUCT USED FOR UNKNOWN INDICATION
     Dosage: 50 MG, Q12H
     Route: 065
  2. ASPIRIN. [Concomitant]
     Active Substance: ASPIRIN
     Indication: PRODUCT USED FOR UNKNOWN INDICATION
     Dosage: UNK
     Route: 065
  3. TRAZODON [Concomitant]
     Active Substance: TRAZODONE HYDROCHLORIDE
     Indication: PRODUCT USED FOR UNKNOWN INDICATION
     Dosage: 50 MG, QD
     Route: 065
  4. COSENTYX [Suspect]
     Active Substance: SECUKINUMAB
     Indication: ANKYLOSING SPONDYLITIS
     Dosage: 150 MG, QMO
     Route: 058
     Dates: start: 20180724
  5. ESCITALOPRAM OXALATE. [Suspect]
     Active Substance: ESCITALOPRAM OXALATE
     Indication: PRODUCT USED FOR UNKNOWN INDICATION
     Dosage: 10 MG, QD (1 IN THE MORNING)
     Route: 065
  6. AMLODIPINE [Suspect]
     Active Substance: AMLODIPINE BESYLATE
     Indication: PRODUCT USED FOR UNKNOWN INDICATION
     Dosage: 5 MG, QD
     Route: 065
  7. HYDROCHLOROTHIAZIDE. [Concomitant]
     Active Substance: HYDROCHLOROTHIAZIDE
     Indication: PRODUCT USED FOR UNKNOWN INDICATION
     Dosage: 1 DF, QD
     Route: 065
  8. FUROSEMIDE. [Suspect]
     Active Substance: FUROSEMIDE
     Indication: PRODUCT USED FOR UNKNOWN INDICATION
     Dosage: UNK
     Route: 065
  9. NIMESULIDE [Concomitant]
     Active Substance: NIMESULIDE
     Indication: PAIN
     Dosage: UNK
     Route: 065

REACTIONS (21)
  - Subcutaneous abscess [Recovering/Resolving]
  - Tuberculin test positive [Not Recovered/Not Resolved]
  - Dysphonia [Not Recovered/Not Resolved]
  - Dry throat [Not Recovered/Not Resolved]
  - Dry mouth [Not Recovered/Not Resolved]
  - Chills [Not Recovered/Not Resolved]
  - Weight increased [Unknown]
  - Eye irritation [Not Recovered/Not Resolved]
  - Pyrexia [Not Recovered/Not Resolved]
  - Latent tuberculosis [Recovering/Resolving]
  - Furuncle [Recovering/Resolving]
  - Malaise [Recovering/Resolving]
  - Overweight [Not Recovered/Not Resolved]
  - Sjogren^s syndrome [Not Recovered/Not Resolved]
  - Oropharyngeal pain [Recovering/Resolving]
  - Nasal congestion [Recovering/Resolving]
  - Influenza [Not Recovered/Not Resolved]
  - Back pain [Not Recovered/Not Resolved]
  - Headache [Recovering/Resolving]
  - Wheezing [Not Recovered/Not Resolved]
  - Cough [Not Recovered/Not Resolved]

NARRATIVE: CASE EVENT DATE: 2018
